FAERS Safety Report 11199297 (Version 1)
Quarter: 2015Q2

REPORT INFORMATION
  Report Type: Spontaneous
  Country: US (occurrence: None)
  Receive Date: 20150608
  Receipt Date: 20150608
  Transmission Date: 20150821
  Serious: Yes (Hospitalization)
  Sender: FDA-Public Use
  Company Number: HYP201502-000014

PATIENT
  Age: 6 Month
  Sex: Male

DRUGS (2)
  1. RAVICTI [Suspect]
     Active Substance: GLYCEROL PHENYLBUTYRATE
     Indication: UREA CYCLE ENZYME DEFICIENCY
     Route: 048
     Dates: start: 20141104
  2. ARGININE [Concomitant]
     Active Substance: ARGININE

REACTIONS (2)
  - Metabolic acidosis [None]
  - Hyperammonaemic crisis [None]

NARRATIVE: CASE EVENT DATE: 20150202
